FAERS Safety Report 4461632-8 (Version None)
Quarter: 2004Q3

REPORT INFORMATION
  Report Type: 
  Country: None (occurrence: None)
  Receive Date: 20040923
  Receipt Date: 20040920
  Transmission Date: 20050211
  Serious: Yes (Death, Hospitalization)
  Sender: FDA-Public Use
  Company Number: B01200400607

PATIENT
  Age: 82 Year
  Sex: Female

DRUGS (17)
  1. CLOPIDOGREL [Suspect]
     Indication: ISCHAEMIA
     Dosage: 75 MG QD  ORAL
     Route: 048
     Dates: start: 20030731, end: 20040218
  2. CLOPIDOGREL [Suspect]
     Indication: PROPHYLAXIS
     Dosage: 75 MG QD  ORAL
     Route: 048
     Dates: start: 20030731, end: 20040218
  3. ACETYLSALICYLIC ACID SRT [Concomitant]
  4. CARDIZEM [Concomitant]
  5. ATACAND [Concomitant]
  6. LASIX [Concomitant]
  7. EFFEXOR [Concomitant]
  8. ATARAX [Concomitant]
  9. KOFFEX(DEXTROMETHORPHAN) [Concomitant]
  10. SENEKOT(SENNA FRUIT) [Concomitant]
  11. TRAZODONE HCL [Concomitant]
  12. PANTOLOC (PANTOPRAZOLE SODIUM) [Concomitant]
  13. COMBIVENT [Concomitant]
  14. FLOVENT [Concomitant]
  15. NITRO SPRAY (ISOSORBIDE DINITRATE) [Concomitant]
  16. NITRO-DUR [Concomitant]
  17. ATIVAN [Concomitant]

REACTIONS (7)
  - BILE DUCT CANCER [None]
  - BILE DUCT STENOSIS [None]
  - CHOLELITHIASIS [None]
  - DILATATION INTRAHEPATIC DUCT ACQUIRED [None]
  - HEPATIC FAILURE [None]
  - PANCREATIC CARCINOMA [None]
  - PRURITUS GENERALISED [None]
